FAERS Safety Report 5943526-1 (Version None)
Quarter: 2008Q4

REPORT INFORMATION
  Report Type: 
  Country: None (occurrence: None)
  Receive Date: 20081106
  Receipt Date: 20081029
  Transmission Date: 20090506
  Serious: Yes (Other)
  Sender: FDA-Public Use
  Company Number: SE-BAXTER-2008BH011530

PATIENT
  Sex: Female

DRUGS (1)
  1. ENDOXAN BAXTER [Suspect]
     Indication: MULTIPLE MYELOMA
     Dosage: DOSE UNIT:UNKNOWN
     Route: 065

REACTIONS (2)
  - PNEUMONIA [None]
  - RESPIRATORY DISTRESS [None]
